FAERS Safety Report 12194704 (Version 1)
Quarter: 2016Q1

REPORT INFORMATION
  Report Type: Spontaneous
  Country: FR (occurrence: FR)
  Receive Date: 20160321
  Receipt Date: 20160321
  Transmission Date: 20160526
  Serious: Yes (Hospitalization, Other)
  Sender: FDA-Public Use
  Company Number: FR-ELI_LILLY_AND_COMPANY-FR201603002030

PATIENT
  Age: 55 Year
  Sex: Male

DRUGS (4)
  1. AVASTIN [Suspect]
     Active Substance: BEVACIZUMAB
     Indication: LUNG ADENOCARCINOMA
     Dosage: UNK, UNKNOWN
     Route: 042
     Dates: start: 20151012, end: 20151211
  2. NEORECORMON [Concomitant]
     Active Substance: ERYTHROPOIETIN
  3. CISPLATINE [Suspect]
     Active Substance: CISPLATIN
     Indication: LUNG ADENOCARCINOMA
     Dosage: UNK, UNKNOWN
     Route: 042
     Dates: start: 20150926, end: 20151211
  4. ALIMTA [Suspect]
     Active Substance: PEMETREXED DISODIUM
     Indication: LUNG ADENOCARCINOMA
     Dosage: UNK, CYCLICAL
     Route: 042
     Dates: start: 20150926, end: 20151211

REACTIONS (6)
  - Myocardial infarction [Unknown]
  - Off label use [Unknown]
  - Asthenia [Unknown]
  - Ischaemic stroke [Recovered/Resolved with Sequelae]
  - Back pain [Unknown]
  - Decreased appetite [Unknown]

NARRATIVE: CASE EVENT DATE: 20151224
